FAERS Safety Report 18729474 (Version 2)
Quarter: 2021Q3

REPORT INFORMATION
  Report Type: Report from Study
  Country: DE (occurrence: DE)
  Receive Date: 20210112
  Receipt Date: 20210824
  Transmission Date: 20211014
  Serious: No
  Sender: FDA-Public Use
  Company Number: DE-TAKEDA-SPV1-2009-01744

PATIENT
  Age: 15 Year
  Sex: Male
  Weight: 39 kg

DRUGS (9)
  1. SULTAMICILLIN [Concomitant]
     Active Substance: SULTAMICILLIN
     Indication: INFECTION
  2. SALBUTAMOL [Concomitant]
     Active Substance: ALBUTEROL
     Indication: RESPIRATORY DISORDER
  3. TAVOR (LORAZEPAM) [Concomitant]
     Active Substance: LORAZEPAM
     Indication: SLEEP DISORDER
  4. IDURSULFASE [Suspect]
     Active Substance: IDURSULFASE
     Indication: MUCOPOLYSACCHARIDOSIS II
     Dosage: .46 MG/KG, UNK
     Route: 041
     Dates: start: 20080116
  5. MELATONIN [Concomitant]
     Active Substance: MELATONIN
     Indication: SLEEP DISORDER
     Dosage: 2.5 MG, 1X/DAY:QD
     Dates: start: 2009
  6. LAMOTRIGINE. [Concomitant]
     Active Substance: LAMOTRIGINE
     Indication: NERVOUS SYSTEM DISORDER
  7. GENISTEIN [Concomitant]
     Active Substance: GENISTEIN
     Indication: PRODUCT USED FOR UNKNOWN INDICATION
  8. MOVICOL [Concomitant]
     Active Substance: POLYETHYLENE GLYCOL 3350\POTASSIUM CHLORIDE\SODIUM BICARBONATE\SODIUM CHLORIDE
     Indication: GASTROINTESTINAL DISORDER
  9. MELPERON [Concomitant]
     Active Substance: MELPERONE
     Indication: BEHAVIOUR DISORDER
     Dosage: 25 MG, 1X/DAY:QD
     Dates: start: 20090601

REACTIONS (2)
  - Carpal tunnel syndrome [Recovered/Resolved with Sequelae]
  - Infusion related reaction [Recovered/Resolved with Sequelae]

NARRATIVE: CASE EVENT DATE: 200801
